FAERS Safety Report 13052212 (Version 1)
Quarter: 2016Q4

REPORT INFORMATION
  Report Type: Spontaneous
  Country: FR (occurrence: FR)
  Receive Date: 20161221
  Receipt Date: 20161221
  Transmission Date: 20170207
  Serious: Yes (Death, Hospitalization)
  Sender: FDA-Public Use
  Company Number: FR-MYLANLABS-2016M1056529

PATIENT

DRUGS (5)
  1. PARACETAMOL + TRAMADOL [Concomitant]
     Indication: PRODUCT USED FOR UNKNOWN INDICATION
  2. PREDNISOLONE. [Concomitant]
     Active Substance: PREDNISOLONE
     Indication: PRODUCT USED FOR UNKNOWN INDICATION
     Dosage: 60 MG, QD
  3. ROSUVASTATIN. [Concomitant]
     Active Substance: ROSUVASTATIN
     Indication: DYSLIPIDAEMIA
  4. CLARITHROMYCIN. [Suspect]
     Active Substance: CLARITHROMYCIN
     Indication: INFECTION
     Dosage: 1 G, QD
  5. COLCHICINE. [Interacting]
     Active Substance: COLCHICINE
     Indication: GOUT
     Dosage: 1 MG, QD

REACTIONS (14)
  - Altered state of consciousness [Unknown]
  - Transaminases increased [Unknown]
  - Labelled drug-drug interaction medication error [Fatal]
  - Diarrhoea [Unknown]
  - Cough [Unknown]
  - Asthenia [Unknown]
  - Pyrexia [Unknown]
  - Thrombocytopenia [Unknown]
  - Neutropenia [Unknown]
  - Respiratory distress [Fatal]
  - Aplasia [Fatal]
  - Skin discolouration [Unknown]
  - Septic shock [Fatal]
  - Renal failure [Unknown]
